FAERS Safety Report 25246258 (Version 1)
Quarter: 2025Q2

REPORT INFORMATION
  Report Type: Spontaneous
  Country: CN (occurrence: CN)
  Receive Date: 20250428
  Receipt Date: 20250428
  Transmission Date: 20250716
  Serious: Yes (Hospitalization)
  Sender: MERCK SHARP & DOHME LLC
  Company Number: CN-009507513-2277588

PATIENT
  Age: 31 Year
  Sex: Male
  Weight: 65.9 kg

DRUGS (2)
  1. KEYTRUDA [Suspect]
     Active Substance: PEMBROLIZUMAB
     Indication: Renal cancer stage IV
     Dosage: 200 MG, EVERY 21 DAYS
     Route: 041
     Dates: start: 20231102, end: 20250307
  2. LENVATINIB [Concomitant]
     Active Substance: LENVATINIB
     Indication: Renal cancer stage IV
     Route: 048
     Dates: start: 202311

REACTIONS (2)
  - Myoglobin blood increased [Unknown]
  - Product use in unapproved indication [Unknown]

NARRATIVE: CASE EVENT DATE: 20231102
